FAERS Safety Report 4356900-4 (Version None)
Quarter: 2004Q2

REPORT INFORMATION
  Report Type: 
  Country: None (occurrence: None)
  Receive Date: 20040507
  Receipt Date: 20040421
  Transmission Date: 20050107
  Serious: Yes (Hospitalization)
  Sender: FDA-Public Use
  Company Number: EWC040338434

PATIENT
  Age: 85 Year
  Sex: Female

DRUGS (6)
  1. FORTEO [Suspect]
     Dosage: 20 UG
     Dates: start: 20040303
  2. ACECOMB [Concomitant]
     Indication: HYPERTENSION
  3. DIAZEPAM [Concomitant]
  4. PARIET    (RABEPRAZOLE SODIUM) [Concomitant]
  5. DAFLON   (DIOSMIN) [Concomitant]
  6. OSTEO [Concomitant]

REACTIONS (2)
  - DIARRHOEA [None]
  - GENERAL PHYSICAL HEALTH DETERIORATION [None]
